FAERS Safety Report 8932865 (Version 2)
Quarter: 2013Q1

REPORT INFORMATION
  Report Type: Spontaneous
  Country: US (occurrence: US)
  Receive Date: 20121129
  Receipt Date: 20130222
  Transmission Date: 20140127
  Serious: Yes (Life-Threatening, Hospitalization)
  Sender: FDA-Public Use
  Company Number: US-BAYER-2012-124701

PATIENT
  Age: 29 Year
  Sex: Female
  Weight: 91.61 kg

DRUGS (12)
  1. YAZ [Suspect]
     Indication: CONTRACEPTION
     Dosage: UNK
     Dates: start: 20100626, end: 20101111
  2. VITAMIN D [Concomitant]
     Dosage: UNK
     Dates: start: 201008
  3. ALTACE [Concomitant]
     Dosage: UNK
     Dates: start: 200608
  4. HYDROCHLOROTHIAZIDE [Concomitant]
     Dosage: UNK
     Dates: start: 200910
  5. BACTRIM [Concomitant]
     Dosage: UNK
     Dates: start: 201011
  6. FUROSEMIDE [Concomitant]
     Dosage: UNK
     Dates: start: 201004, end: 201102
  7. COREG [Concomitant]
     Dosage: UNK
     Dates: start: 200603, end: 201102
  8. PERCOCET [Concomitant]
  9. POTASSIUM CHLORIDE [Concomitant]
  10. CARVEDILOL [Concomitant]
  11. LASIX [Concomitant]
  12. IBUPROFEN [Concomitant]

REACTIONS (7)
  - Gallbladder disorder [None]
  - Cholecystitis chronic [None]
  - Injury [None]
  - Pain [None]
  - Anxiety [None]
  - Anhedonia [None]
  - Fear of disease [None]
